FAERS Safety Report 19475768 (Version 1)
Quarter: 2021Q2

REPORT INFORMATION
  Report Type: Spontaneous
  Country: JP (occurrence: JP)
  Receive Date: 20210630
  Receipt Date: 20210630
  Transmission Date: 20210717
  Serious: Yes (Other)
  Sender: FDA-Public Use
  Company Number: NVSJ2021JP005973

PATIENT
  Age: 69 Year
  Sex: Male

DRUGS (1)
  1. BEOVU [Suspect]
     Active Substance: BROLUCIZUMAB-DBLL
     Indication: NEOVASCULAR AGE-RELATED MACULAR DEGENERATION
     Dosage: 6 MG
     Route: 031
     Dates: start: 20201104, end: 20201104

REACTIONS (6)
  - Non-infectious endophthalmitis [Unknown]
  - Cataract [Unknown]
  - Vitreous floaters [Unknown]
  - Vitreous opacities [Recovered/Resolved]
  - Vision blurred [Unknown]
  - Retinal degeneration [Unknown]

NARRATIVE: CASE EVENT DATE: 20201127
